FAERS Safety Report 4448032-1 (Version None)
Quarter: 2004Q3

REPORT INFORMATION
  Report Type: 
  Country: None (occurrence: None)
  Receive Date: 20040826
  Receipt Date: 20040722
  Transmission Date: 20050211
  Serious: Yes (Other)
  Sender: FDA-Public Use
  Company Number: 2004AP000639

PATIENT
  Age: 35 Year
  Sex: Male

DRUGS (1)
  1. CYCLOSPORINE [Suspect]
     Indication: IMMUNOSUPPRESSION
     Dosage: ORAL
     Route: 048

REACTIONS (5)
  - DRUG LEVEL INCREASED [None]
  - FATIGUE [None]
  - FOOD INTERACTION [None]
  - RENAL IMPAIRMENT [None]
  - TREMOR [None]
